FAERS Safety Report 9948286 (Version 2)
Quarter: 2014Q1

REPORT INFORMATION
  Report Type: Report from Study
  Country: AU (occurrence: AU)
  Receive Date: 20140303
  Receipt Date: 20140324
  Transmission Date: 20141002
  Serious: Yes (Death, Other)
  Sender: FDA-Public Use
  Company Number: AU-BRISTOL-MYERS SQUIBB COMPANY-20267787

PATIENT
  Age: 78 Year
  Sex: 0

DRUGS (1)
  1. YERVOY [Suspect]
     Indication: METASTATIC MALIGNANT MELANOMA
     Dosage: DOSE 276 MG?CYCLE3- 27NOV13

REACTIONS (3)
  - Death [Fatal]
  - Diarrhoea [Unknown]
  - Renal impairment [Unknown]
